FAERS Safety Report 16244845 (Version 2)
Quarter: 2019Q2

REPORT INFORMATION
  Report Type: Spontaneous
  Country: JP (occurrence: JP)
  Receive Date: 20190426
  Receipt Date: 20190614
  Transmission Date: 20190711
  Serious: Yes (Hospitalization, Other)
  Sender: FDA-Public Use
  Company Number: JP-BRISTOL-MYERS SQUIBB COMPANY-BMS-2019-041451

PATIENT
  Age: 22 Year
  Sex: Female

DRUGS (1)
  1. OPDIVO [Suspect]
     Active Substance: NIVOLUMAB
     Indication: PRIMARY MEDIASTINAL LARGE B-CELL LYMPHOMA RECURRENT
     Dosage: 3 MILLIGRAM/KILOGRAM, Q2WK
     Route: 041

REACTIONS (5)
  - Autoimmune thyroiditis [Unknown]
  - Engraftment syndrome [Unknown]
  - Colitis [Unknown]
  - Product use in unapproved indication [Unknown]
  - Graft versus host disease in skin [Recovering/Resolving]
